FAERS Safety Report 8507781-6 (Version None)
Quarter: 2012Q3

REPORT INFORMATION
  Report Type: 
  Country: None (occurrence: None)
  Receive Date: 20120713
  Receipt Date: 20120705
  Transmission Date: 20120928
  Serious: Yes (Other)
  Sender: FDA-Public Use
  Company Number: PHFR2012GB003880

PATIENT
  Age: 3 Year
  Sex: Male
  Weight: 15.48 kg

DRUGS (1)
  1. PAMIDRONATE DISODIUM [Suspect]
     Indication: OSTEOGENESIS IMPERFECTA
     Dosage: 1.5 MG/KG, UNK
     Route: 042

REACTIONS (2)
  - CELLULITIS [None]
  - PARONYCHIA [None]
